FAERS Safety Report 23382259 (Version 4)
Quarter: 2024Q1

REPORT INFORMATION
  Report Type: Report from Study
  Country: CA (occurrence: CA)
  Receive Date: 20240109
  Receipt Date: 20240216
  Transmission Date: 20240409
  Serious: Yes (Other)
  Sender: FDA-Public Use
  Company Number: CA-HLS-202302854

PATIENT
  Age: 64 Year
  Sex: Male

DRUGS (1)
  1. CLOZARIL [Suspect]
     Active Substance: CLOZAPINE
     Indication: Product used for unknown indication
     Route: 048
     Dates: start: 19981109, end: 20240115

REACTIONS (6)
  - Neutrophilia [Unknown]
  - Anticholinergic syndrome [Unknown]
  - Sedation complication [Unknown]
  - Renal failure [Recovered/Resolved]
  - Blood creatinine increased [Unknown]
  - Seizure [Unknown]

NARRATIVE: CASE EVENT DATE: 20231210
